FAERS Safety Report 10657508 (Version 4)
Quarter: 2015Q2

REPORT INFORMATION
  Report Type: Spontaneous
  Country: US (occurrence: US)
  Receive Date: 20141217
  Receipt Date: 20150414
  Transmission Date: 20150821
  Serious: No
  Sender: FDA-Public Use
  Company Number: US-PFIZER INC-2014295006

PATIENT
  Age: 83 Year
  Sex: Female

DRUGS (6)
  1. LYRICA [Suspect]
     Active Substance: PREGABALIN
     Indication: PROCEDURAL PAIN
     Dosage: UNK
  2. WARFARIN [Concomitant]
     Active Substance: WARFARIN
     Indication: PULMONARY EMBOLISM
  3. LYRICA [Suspect]
     Active Substance: PREGABALIN
     Dosage: UNK
  4. WARFARIN [Concomitant]
     Active Substance: WARFARIN
     Indication: LYMPHOMA
     Dosage: (ONE TABLET A DAY FOR 6 DAYS AND THEN HALF A TABLET ON ONE DAY )
  5. LYRICA [Suspect]
     Active Substance: PREGABALIN
     Dosage: 75 MG, 2X/DAY
     Route: 048
     Dates: start: 20141003
  6. LYRICA [Suspect]
     Active Substance: PREGABALIN
     Dosage: 200 MG (75 MG IN MORNING, 50 MG IN AFTERNOON AND 75 MG IN NIGHT BEFORE BED), DAILY

REACTIONS (3)
  - Drug ineffective [Unknown]
  - Pain [Unknown]
  - Off label use [Unknown]
